FAERS Safety Report 10564745 (Version 2)
Quarter: 2014Q4

REPORT INFORMATION
  Report Type: Spontaneous
  Country: US (occurrence: US)
  Receive Date: 20141105
  Receipt Date: 20141204
  Transmission Date: 20150529
  Serious: Yes (Death, Life-Threatening, Other)
  Sender: FDA-Public Use
  Company Number: US-ROCHE-1483618

PATIENT
  Age: 67 Year
  Sex: Female

DRUGS (1)
  1. ACTIVASE [Suspect]
     Active Substance: ALTEPLASE
     Indication: CEREBROVASCULAR ACCIDENT
     Route: 065

REACTIONS (3)
  - Death [Fatal]
  - Haemorrhagic transformation stroke [Unknown]
  - Slow speech [Unknown]
